FAERS Safety Report 9701212 (Version 2)
Quarter: 2015Q3

REPORT INFORMATION
  Report Type: Spontaneous
  Country: US (occurrence: US)
  Receive Date: 20131121
  Receipt Date: 20150803
  Transmission Date: 20151125
  Serious: No
  Sender: FDA-Public Use
  Company Number: US-GILEAD-2008-0016109

PATIENT
  Age: 56 Year
  Sex: Male
  Weight: 104.33 kg

DRUGS (2)
  1. LETAIRIS [Suspect]
     Active Substance: AMBRISENTAN
     Indication: PULMONARY ARTERIAL HYPERTENSION
     Route: 048
     Dates: start: 20071116, end: 20080414
  2. COUMADIN [Concomitant]
     Active Substance: WARFARIN SODIUM
     Route: 048

REACTIONS (3)
  - Flushing [None]
  - Fatigue [None]
  - Nasal congestion [None]

NARRATIVE: CASE EVENT DATE: 20080215
